FAERS Safety Report 22358338 (Version 2)
Quarter: 2023Q2

REPORT INFORMATION
  Report Type: Spontaneous
  Country: US (occurrence: US)
  Receive Date: 20230524
  Receipt Date: 20230621
  Transmission Date: 20230722
  Serious: Yes (Other)
  Sender: FDA-Public Use
  Company Number: US-SA-SAC20230523000658

PATIENT
  Age: 8 Year
  Sex: Male

DRUGS (2)
  1. ALPROLIX [Suspect]
     Active Substance: EFTRENONACOG ALFA
     Indication: Factor IX deficiency
     Dosage: INFUSE 2100 UNITS (1890-2310) SLOW IV PUSH EVERY 7 DAYS AND AS NEEDED FOR BLEEDING EPISODES
     Route: 042
     Dates: start: 202302
  2. ALPROLIX [Suspect]
     Active Substance: EFTRENONACOG ALFA
     Indication: Factor IX deficiency
     Dosage: INFUSE 2100 UNITS (1890-2310) SLOW IV PUSH EVERY 7 DAYS AND AS NEEDED FOR BLEEDING EPISODES
     Route: 042
     Dates: start: 202302

REACTIONS (2)
  - Haemorrhage [Unknown]
  - Haemorrhage [Recovered/Resolved]

NARRATIVE: CASE EVENT DATE: 20230509
